FAERS Safety Report 6209669-2 (Version None)
Quarter: 2009Q2

REPORT INFORMATION
  Report Type: 
  Country: None (occurrence: None)
  Receive Date: 20090529
  Receipt Date: 20090529
  Transmission Date: 20091009
  Serious: Yes (Other)
  Sender: FDA-Public Use
  Company Number: None

PATIENT
  Age: 49 Year
  Sex: Female
  Weight: 72.5755 kg

DRUGS (4)
  1. HYDROCODONE BITARTRATE + ACETAMINOPHEN [Suspect]
     Indication: ARTHRALGIA
     Dosage: 1 CAPLET 10/650 EV. 4 TO 6 MO ORAL
     Route: 048
     Dates: start: 20080901, end: 20090313
  2. HYDROCODONE BITARTRATE + ACETAMINOPHEN [Suspect]
     Indication: BACK PAIN
     Dosage: 1 CAPLET 10/650 EV. 4 TO 6 MO ORAL
     Route: 048
     Dates: start: 20080901, end: 20090313
  3. HYDROCODONE BITARTRATE + ACETAMINOPHEN [Suspect]
  4. HYDROCODONE BITARTRATE + ACETAMINOPHEN [Suspect]

REACTIONS (4)
  - ARTHRALGIA [None]
  - BACK PAIN [None]
  - CONDITION AGGRAVATED [None]
  - LABORATORY TEST ABNORMAL [None]
